FAERS Safety Report 20175354 (Version 2)
Quarter: 2021Q4

REPORT INFORMATION
  Report Type: Spontaneous
  Country: ES (occurrence: ES)
  Receive Date: 20211213
  Receipt Date: 20211222
  Transmission Date: 20220303
  Serious: Yes (Other)
  Sender: FDA-Public Use
  Company Number: ES-AstraZeneca-2021A861238

PATIENT
  Age: 14 Month
  Sex: Female

DRUGS (1)
  1. SYNAGIS [Suspect]
     Active Substance: PALIVIZUMAB
     Indication: Product used for unknown indication
     Dosage: UNKNOWN
     Route: 030

REACTIONS (5)
  - Tremor [Unknown]
  - Altered state of consciousness [Unknown]
  - Pallor [Unknown]
  - Erythema [Unknown]
  - Pyrexia [Unknown]
